FAERS Safety Report 5717289-9 (Version None)
Quarter: 2008Q2

REPORT INFORMATION
  Report Type: 
  Country: None (occurrence: None)
  Receive Date: 20080423
  Receipt Date: 20080407
  Transmission Date: 20081010
  Serious: Yes (Hospitalization)
  Sender: FDA-Public Use
  Company Number: JPI-P-003389

PATIENT
  Sex: Female

DRUGS (2)
  1. LUVOX [Suspect]
     Indication: DEPRESSION
     Dosage: ORAL
     Route: 048
     Dates: start: 20080101
  2. ACETAMINOPHEN [Concomitant]

REACTIONS (7)
  - COUGH [None]
  - DIARRHOEA [None]
  - LIVER FUNCTION TEST ABNORMAL [None]
  - PIGMENTATION DISORDER [None]
  - PYREXIA [None]
  - RASH [None]
  - VOMITING [None]
